FAERS Safety Report 8606626 (Version 2)
Quarter: 2013Q2

REPORT INFORMATION
  Report Type: Spontaneous
  Country: US (occurrence: US)
  Receive Date: 20120608
  Receipt Date: 20130429
  Transmission Date: 20140414
  Serious: No
  Sender: FDA-Public Use
  Company Number: US-ASTRAZENECA-2011SE59269

PATIENT
  Age: 56 Year
  Sex: Female

DRUGS (13)
  1. PULMICORT FLEXHALER [Suspect]
     Route: 055
  2. PULMICORT FLEXHALER [Suspect]
     Route: 055
  3. SYMBICORT [Suspect]
     Route: 055
  4. PLAVIX [Concomitant]
  5. PREDNISONE [Concomitant]
  6. FLECAINIDE [Concomitant]
  7. ZANTAC [Concomitant]
  8. PROTONIX [Concomitant]
  9. HYDROCODONE [Concomitant]
  10. XANAX [Concomitant]
  11. PERFOROMIST [Concomitant]
  12. FENTANYL PATCH [Concomitant]
  13. CARAFATE [Concomitant]

REACTIONS (4)
  - Adverse event [Unknown]
  - Respiratory tract congestion [Unknown]
  - Headache [Unknown]
  - Drug ineffective [Unknown]
